FAERS Safety Report 19250742 (Version 2)
Quarter: 2021Q2

REPORT INFORMATION
  Report Type: Spontaneous
  Country: IT (occurrence: IT)
  Receive Date: 20210512
  Receipt Date: 20210514
  Transmission Date: 20210717
  Serious: Yes (Other)
  Sender: FDA-Public Use
  Company Number: IT-PFIZER INC-2021409002

PATIENT
  Age: 67 Year
  Sex: Male
  Weight: 65 kg

DRUGS (5)
  1. NALOXEGOL [Concomitant]
     Active Substance: NALOXEGOL
     Dosage: UNK
  2. PANTOPRAZOLE [Concomitant]
     Active Substance: PANTOPRAZOLE
     Dosage: UNK
  3. MEROPENEM. [Suspect]
     Active Substance: MEROPENEM
     Indication: BACTERIAL INFECTION
     Dosage: 2 G, 3X/DAY
     Route: 041
     Dates: start: 20210402, end: 20210405
  4. METHADONE HYDROCHLORIDE. [Concomitant]
     Active Substance: METHADONE HYDROCHLORIDE
     Indication: DRUG DETOXIFICATION
     Dosage: 15 MG, 1X/DAY
     Route: 048
     Dates: start: 20210329
  5. BISOPROLOL FUMARATE. [Concomitant]
     Active Substance: BISOPROLOL FUMARATE
     Dosage: UNK

REACTIONS (7)
  - Lymphocyte count decreased [Recovered/Resolved]
  - Rash [Recovering/Resolving]
  - Eosinophilia [Recovered/Resolved]
  - Rash [Recovered/Resolved]
  - Lymphocytosis [Recovered/Resolved]
  - Blood creatinine increased [Recovered/Resolved]
  - Rash erythematous [Recovering/Resolving]

NARRATIVE: CASE EVENT DATE: 20210402
